FAERS Safety Report 12271806 (Version 1)
Quarter: 2016Q2

REPORT INFORMATION
  Report Type: Spontaneous
  Country: US (occurrence: None)
  Receive Date: 20160414
  Receipt Date: 20160414
  Transmission Date: 20160815
  Serious: Yes (Life-Threatening)
  Sender: FDA-Public Use
  Company Number: None

PATIENT
  Age: 72 Year
  Sex: Male

DRUGS (2)
  1. WARFARIN 3MG TARO [Suspect]
     Active Substance: WARFARIN
     Dosage: S-S  M-F
     Route: 048
     Dates: start: 20150522
  2. CLINDAMYCIN 150MG RANBAXY [Suspect]
     Active Substance: CLINDAMYCIN PHOSPHATE
     Dosage: 2 CAPSULES
     Route: 048
     Dates: start: 20160331, end: 20160404

REACTIONS (5)
  - Peripheral swelling [None]
  - Musculoskeletal disorder [None]
  - Skin discolouration [None]
  - Haemorrhage [None]
  - International normalised ratio abnormal [None]
